FAERS Safety Report 5805958-1 (Version None)
Quarter: 2008Q3

REPORT INFORMATION
  Report Type: 
  Country: None (occurrence: None)
  Receive Date: 20080710
  Receipt Date: 20080704
  Transmission Date: 20090109
  Serious: Yes (Death)
  Sender: FDA-Public Use
  Company Number: US-ROCHE-574409

PATIENT
  Sex: Female
  Weight: 68.9 kg

DRUGS (3)
  1. CAPECITABINE [Suspect]
     Indication: BREAST CANCER
     Dosage: 2 WEEKS ON AND 1 WEEK OFF
     Route: 065
     Dates: start: 20070724
  2. TYKERB [Concomitant]
  3. ZOMETA [Concomitant]

REACTIONS (1)
  - DEATH [None]
